FAERS Safety Report 19903549 (Version 1)
Quarter: 2021Q4

REPORT INFORMATION
  Report Type: Spontaneous
  Country: US (occurrence: US)
  Receive Date: 20211001
  Receipt Date: 20211001
  Transmission Date: 20220303
  Serious: Yes (Hospitalization, Other)
  Sender: FDA-Public Use
  Company Number: US-RK PHARMA, INC-20210900012

PATIENT

DRUGS (4)
  1. MYCOPHENOLIC ACID [Suspect]
     Active Substance: MYCOPHENOLIC ACID
     Dosage: 720 MILLIGRAM, BID
  2. MYCOPHENOLIC ACID [Suspect]
     Active Substance: MYCOPHENOLIC ACID
     Dosage: 360 MILLIGRAM, BID
  3. TACROLIMUS [Concomitant]
     Active Substance: TACROLIMUS
     Dosage: 2 MG AM, 1 MG PM
  4. PREDNISONE [Concomitant]
     Active Substance: PREDNISONE
     Dosage: 5 MILLIGRAM, DAILY

REACTIONS (3)
  - Acute kidney injury [Recovered/Resolved]
  - Gastroenteritis sapovirus [Recovered/Resolved]
  - Diarrhoea [Recovered/Resolved]
